FAERS Safety Report 21525243 (Version 1)
Quarter: 2022Q4

REPORT INFORMATION
  Report Type: Report from Study
  Country: US (occurrence: US)
  Receive Date: 20221030
  Receipt Date: 20221030
  Transmission Date: 20230112
  Serious: No
  Sender: FDA-Public Use
  Company Number: US-ABBVIE-4130516

PATIENT
  Sex: Male

DRUGS (4)
  1. RINVOQ [Suspect]
     Active Substance: UPADACITINIB
     Indication: Rheumatoid arthritis
     Route: 048
  2. COVID-19 vaccine [Concomitant]
     Indication: COVID-19 immunisation
     Dosage: 1 IN ONCE ?FIRST DOSE?JOHNSON AND JOHNSON
     Route: 030
  3. COVID-19 vaccine [Concomitant]
     Indication: COVID-19 immunisation
     Dosage: 1 IN ONCE?2ND DOSE?JOHNSON AND JOHNSON
     Route: 030
  4. Pfizer/BioNTech  Covid-19 Vaccination [Concomitant]
     Indication: COVID-19 immunisation
     Dosage: 1 IN ONCE ?BOOSTER DOSE
     Route: 030

REACTIONS (2)
  - Seasonal allergy [Recovered/Resolved]
  - COVID-19 [Recovered/Resolved]
